FAERS Safety Report 19410270 (Version 3)
Quarter: 2021Q3

REPORT INFORMATION
  Report Type: Other
  Country: JP (occurrence: JP)
  Receive Date: 20210614
  Receipt Date: 20210909
  Transmission Date: 20211014
  Serious: Yes (Hospitalization)
  Sender: FDA-Public Use
  Company Number: JP-ROCHE-2847076

PATIENT
  Age: 53 Year
  Sex: Female

DRUGS (2)
  1. SATRALIZUMAB. [Suspect]
     Active Substance: SATRALIZUMAB
     Route: 058
     Dates: start: 20201203
  2. SATRALIZUMAB. [Suspect]
     Active Substance: SATRALIZUMAB
     Indication: NEUROMYELITIS OPTICA SPECTRUM DISORDER
     Route: 058
     Dates: start: 20201105, end: 20201119

REACTIONS (1)
  - Cellulitis [Recovering/Resolving]

NARRATIVE: CASE EVENT DATE: 202105
